FAERS Safety Report 9988753 (Version 2)
Quarter: 2014Q1

REPORT INFORMATION
  Report Type: Spontaneous
  Country: DK (occurrence: DK)
  Receive Date: 20140310
  Receipt Date: 20140326
  Transmission Date: 20141002
  Serious: Yes (Other)
  Sender: FDA-Public Use
  Company Number: DK-ACCORD-022217

PATIENT
  Age: 50 Year
  Sex: Female

DRUGS (9)
  1. FLUOROURACIL [Suspect]
     Indication: PRODUCT USED FOR UNKNOWN INDICATION
     Dosage: CMF TREATMENT REGIMEN
     Route: 065
     Dates: start: 201106, end: 20111104
  2. GEMCITABINE/GEMCITABINE HYDROCHLORIDE [Suspect]
     Indication: PRODUCT USED FOR UNKNOWN INDICATION
     Route: 065
     Dates: start: 20120918
  3. TAXOL [Suspect]
     Indication: PRODUCT USED FOR UNKNOWN INDICATION
     Route: 065
     Dates: start: 20120110, end: 20120911
  4. CYCLOPHOSPHAMIDE/CYCLOPHOSPHAMIDE MONOHYDRATE [Suspect]
     Indication: PRODUCT USED FOR UNKNOWN INDICATION
     Dosage: CMF TREATMENT REGIMEN
     Route: 065
     Dates: start: 201106, end: 20111104
  5. NAVELBINE [Concomitant]
     Route: 065
     Dates: start: 20111104, end: 20120106
  6. METHOTREXATE [Suspect]
     Indication: PRODUCT USED FOR UNKNOWN INDICATION
     Dosage: CMF TREATMENT REGIMEN
     Route: 065
     Dates: start: 201106, end: 20111104
  7. HERCEPTIN [Suspect]
     Indication: PRODUCT USED FOR UNKNOWN INDICATION
     Dosage: IN COMBINATION WITH ERIBULIN FROM 29-AUG-2013
     Route: 065
     Dates: start: 20130829
  8. XELODA [Suspect]
     Indication: PRODUCT USED FOR UNKNOWN INDICATION
     Route: 065
     Dates: start: 201009
  9. ERIBULIN [Suspect]
     Indication: PRODUCT USED FOR UNKNOWN INDICATION
     Route: 065
     Dates: start: 20130829

REACTIONS (2)
  - Hepatic steatosis [Unknown]
  - Disease progression [Not Recovered/Not Resolved]
